FAERS Safety Report 5382894-9 (Version None)
Quarter: 2007Q3

REPORT INFORMATION
  Report Type: 
  Country: None (occurrence: None)
  Receive Date: 20070703
  Receipt Date: 20070703
  Transmission Date: 20080115
  Serious: Yes (Hospitalization)
  Sender: FDA-Public Use
  Company Number: None

PATIENT
  Sex: Female
  Weight: 56.6996 kg

DRUGS (1)
  1. ULTRAVIST 300 [Suspect]
     Indication: HAEMATURIA
     Dosage: 100 IV
     Route: 042
     Dates: start: 20070629, end: 20070629

REACTIONS (5)
  - DYSPNOEA [None]
  - EYE SWELLING [None]
  - LIP SWELLING [None]
  - OEDEMA PERIPHERAL [None]
  - TREMOR [None]
